FAERS Safety Report 21079566 (Version 2)
Quarter: 2022Q4

REPORT INFORMATION
  Report Type: Report from Study
  Country: US (occurrence: US)
  Receive Date: 20220714
  Receipt Date: 20221005
  Transmission Date: 20230112
  Serious: No
  Sender: FDA-Public Use
  Company Number: US-NOVARTISTESTPH-NVSC2022US159145

PATIENT
  Age: 34 Year
  Sex: Male

DRUGS (1)
  1. COSENTYX [Suspect]
     Active Substance: SECUKINUMAB
     Indication: Psoriasis
     Dosage: (Q WEEK FOR FIVE WEEKS AND THEN Q FOUR), QW
     Route: 058
     Dates: start: 20220701

REACTIONS (1)
  - Therapeutic product effect delayed [Unknown]

NARRATIVE: CASE EVENT DATE: 20220712
